FAERS Safety Report 6443993-3 (Version None)
Quarter: 2009Q4

REPORT INFORMATION
  Report Type: 
  Country: None (occurrence: None)
  Receive Date: 20091116
  Receipt Date: 20091116
  Transmission Date: 20100525
  Serious: Yes (Other)
  Sender: FDA-Public Use
  Company Number: None

PATIENT
  Age: 56 Year
  Sex: Male
  Weight: 58.0604 kg

DRUGS (2)
  1. TRILIPIX [Suspect]
     Dosage: 135 MG ONE A DAY, PO
     Route: 048
     Dates: start: 20091020, end: 20091024
  2. ALGRA [Concomitant]

REACTIONS (3)
  - PRURITUS [None]
  - RASH [None]
  - SLEEP DISORDER [None]
